FAERS Safety Report 19698341 (Version 1)
Quarter: 2021Q3

REPORT INFORMATION
  Report Type: Spontaneous
  Country: HR (occurrence: HR)
  Receive Date: 20210813
  Receipt Date: 20210813
  Transmission Date: 20211014
  Serious: Yes (Other)
  Sender: FDA-Public Use
  Company Number: HR-TEVA-2021-HR-1940903

PATIENT
  Age: 26 Year
  Sex: Female

DRUGS (3)
  1. PREGABALIN. [Suspect]
     Active Substance: PREGABALIN
     Dosage: 750MILLIGRAM
     Route: 048
  2. LORSILAN [Suspect]
     Active Substance: LORAZEPAM
     Dosage: 50MILLIGRAM:ADR IS ADEQUATELY LABELLED: NO?ADR IS ADEQUATELY LABELLED:  SOMNOLENCE, AGITATION?ADR IS
     Route: 048
  3. CLOZAPINE. [Suspect]
     Active Substance: CLOZAPINE
     Dosage: ADR IS ADEQUATELY LABELLED: NO?ADR IS ADEQUATELY LABELLED: SOMNOLENCE,  TACHYCARDIA?ADR IS NOT ADEQU
     Route: 048

REACTIONS (5)
  - Intentional overdose [Unknown]
  - Tachycardia [Unknown]
  - Agitation [Unknown]
  - Somnolence [Unknown]
  - Suicide attempt [Unknown]

NARRATIVE: CASE EVENT DATE: 20210520
